FAERS Safety Report 21313875 (Version 1)
Quarter: 2022Q3

REPORT INFORMATION
  Report Type: Spontaneous
  Country: US (occurrence: None)
  Receive Date: 20220909
  Receipt Date: 20220909
  Transmission Date: 20221026
  Serious: No
  Sender: FDA-Public Use
  Company Number: None

PATIENT
  Age: 80 Year
  Sex: Female
  Weight: 96.62 kg

DRUGS (1)
  1. BENLYSTA [Suspect]
     Active Substance: BELIMUMAB
     Indication: Systemic lupus erythematosus
     Dosage: FREQUENCY : AS DIRECTED;?INFUSE 968MG INTRAVENOUSLY OVER 1 HOUR AT WEEKS 0, 2?AND 4 AS DIRECTED,?
     Route: 042
     Dates: start: 202012

REACTIONS (2)
  - Asthenia [None]
  - Renal impairment [None]
